FAERS Safety Report 8417254-7 (Version None)
Quarter: 2012Q2

REPORT INFORMATION
  Report Type: 
  Country: None (occurrence: None)
  Receive Date: 20120606
  Receipt Date: 20120604
  Transmission Date: 20120825
  Serious: Yes (Other)
  Sender: FDA-Public Use
  Company Number: US-PFIZER INC-2012088604

PATIENT
  Sex: Male

DRUGS (1)
  1. PRISTIQ [Suspect]
     Dosage: 50 MG, 1X/DAY

REACTIONS (5)
  - TENDON RUPTURE [None]
  - INJURY [None]
  - DRUG INEFFECTIVE [None]
  - VERTIGO [None]
  - INFLAMMATION [None]
